FAERS Safety Report 24544963 (Version 1)
Quarter: 2024Q4

REPORT INFORMATION
  Report Type: Spontaneous
  Country: US (occurrence: None)
  Receive Date: 20241024
  Receipt Date: 20241024
  Transmission Date: 20250115
  Serious: Yes (Hospitalization)
  Sender: Public
  Company Number: None

PATIENT
  Age: 58 Year
  Sex: Male
  Weight: 77.9 kg

DRUGS (4)
  1. FLUOROURACIL [Suspect]
     Active Substance: FLUOROURACIL
     Dates: end: 20241011
  2. CAMPTOSAR [Suspect]
     Active Substance: IRINOTECAN HYDROCHLORIDE
     Dates: end: 20241009
  3. LEUCOVORIN CALCIUM [Suspect]
     Active Substance: LEUCOVORIN CALCIUM
     Dates: end: 20241009
  4. ELOXATIN [Suspect]
     Active Substance: OXALIPLATIN
     Dates: end: 20241009

REACTIONS (7)
  - Peripheral ischaemia [None]
  - Aortic stenosis [None]
  - Peripheral artery thrombosis [None]
  - Cardiac ventricular thrombosis [None]
  - Peripheral artery occlusion [None]
  - Vascular occlusion [None]
  - Neuropathy peripheral [None]

NARRATIVE: CASE EVENT DATE: 20241017
